FAERS Safety Report 20173731 (Version 1)
Quarter: 2021Q4

REPORT INFORMATION
  Report Type: Spontaneous
  Country: None (occurrence: CA)
  Receive Date: 20211212
  Receipt Date: 20211212
  Transmission Date: 20220303
  Serious: Yes (Disabling, Other)
  Sender: FDA-Public Use
  Company Number: CA-Ascend Therapeutics US, LLC-2122914

PATIENT
  Sex: Female

DRUGS (3)
  1. ESTROGEL [Suspect]
     Active Substance: ESTRADIOL
     Indication: Product used for unknown indication
     Route: 065
     Dates: start: 2020
  2. ESTROGEL [Suspect]
     Active Substance: ESTRADIOL
  3. ESTROGEL [Suspect]
     Active Substance: ESTRADIOL
     Route: 065
     Dates: start: 2020

REACTIONS (9)
  - Optic nerve injury [Unknown]
  - Retinal injury [Unknown]
  - Vision blurred [Unknown]
  - Visual field defect [Unknown]
  - Condition aggravated [Unknown]
  - Paraesthesia [Unknown]
  - Burning sensation [Unknown]
  - Eye pain [Unknown]
  - Drug interaction [Unknown]

NARRATIVE: CASE EVENT DATE: 20210101
